FAERS Safety Report 20959552 (Version 1)
Quarter: 2022Q2

REPORT INFORMATION
  Report Type: Spontaneous
  Country: IN (occurrence: IN)
  Receive Date: 20220614
  Receipt Date: 20220614
  Transmission Date: 20220721
  Serious: Yes (Hospitalization)
  Sender: FDA-Public Use
  Company Number: IN-DSJP-DSJ-2022-119976

PATIENT
  Age: 65 Year
  Sex: Male

DRUGS (7)
  1. OLMESARTAN MEDOXOMIL [Suspect]
     Active Substance: OLMESARTAN MEDOXOMIL
     Indication: Product used for unknown indication
     Dosage: UNK
     Route: 065
  2. CLOPIDOGREL\ROSUVASTATIN [Suspect]
     Active Substance: CLOPIDOGREL\ROSUVASTATIN
     Indication: Product used for unknown indication
     Dosage: UNK UNK, QD
     Route: 065
  3. CHLORTHALIDONE\CILNIDIPINE [Suspect]
     Active Substance: CHLORTHALIDONE\CILNIDIPINE
     Indication: Product used for unknown indication
     Dosage: UNK, QD
     Route: 065
  4. METOPROLOL [Suspect]
     Active Substance: METOPROLOL
     Indication: Hypertension
     Dosage: 25 MG, QD
     Route: 065
  5. CILNIDIPINE [Suspect]
     Active Substance: CILNIDIPINE
     Indication: Hypertension
     Dosage: 10 MG, QD
     Route: 065
  6. PANTOPRAZOLE [Concomitant]
     Active Substance: PANTOPRAZOLE
     Indication: Product used for unknown indication
     Dosage: 40 MG, QD
     Route: 065
  7. GLICLAZIDE [Concomitant]
     Active Substance: GLICLAZIDE
     Indication: Product used for unknown indication
     Dosage: 60 MG, QD
     Route: 065

REACTIONS (1)
  - Atrioventricular block complete [Recovered/Resolved]
